FAERS Safety Report 10670322 (Version 1)
Quarter: 2014Q4

REPORT INFORMATION
  Report Type: Spontaneous
  Country: US (occurrence: US)
  Receive Date: 20141223
  Receipt Date: 20141223
  Transmission Date: 20150529
  Serious: No
  Sender: FDA-Public Use
  Company Number: US-BIOGENIDEC-2014BI135604

PATIENT
  Sex: Female

DRUGS (3)
  1. AMPYRA [Concomitant]
     Active Substance: DALFAMPRIDINE
     Indication: MULTIPLE SCLEROSIS
     Route: 048
     Dates: start: 20110527
  2. TECFIDERA [Suspect]
     Active Substance: DIMETHYL FUMARATE
     Indication: PRODUCT USED FOR UNKNOWN INDICATION
     Route: 048
     Dates: start: 201407
  3. REBIF [Concomitant]
     Active Substance: INTERFERON BETA-1A

REACTIONS (4)
  - Hot flush [Recovered/Resolved]
  - Blood disorder [Recovered/Resolved]
  - Petechiae [Recovered/Resolved]
  - Abdominal pain upper [Recovered/Resolved]
